FAERS Safety Report 23042594 (Version 1)
Quarter: 2023Q4

REPORT INFORMATION
  Report Type: Report from Study
  Country: US (occurrence: US)
  Receive Date: 20231009
  Receipt Date: 20231009
  Transmission Date: 20240110
  Serious: Yes (Death)
  Sender: FDA-Public Use
  Company Number: US-ABBVIE-5441006

PATIENT
  Age: 86 Year
  Sex: Male
  Weight: 87.089 kg

DRUGS (1)
  1. CREON [Suspect]
     Active Substance: PANCRELIPASE AMYLASE\PANCRELIPASE LIPASE\PANCRELIPASE PROTEASE
     Indication: Product used for unknown indication
     Route: 048
     Dates: end: 20230830

REACTIONS (2)
  - Metabolic encephalopathy [Fatal]
  - Sepsis [Fatal]

NARRATIVE: CASE EVENT DATE: 20230601
